FAERS Safety Report 14670389 (Version 2)
Quarter: 2018Q1

REPORT INFORMATION
  Report Type: Spontaneous
  Country: US (occurrence: US)
  Receive Date: 20180322
  Receipt Date: 20180330
  Transmission Date: 20180509
  Serious: Yes (Other)
  Sender: FDA-Public Use
  Company Number: US-TEVA-2018-US-873014

PATIENT
  Sex: Male
  Weight: 33.5 kg

DRUGS (6)
  1. DOXORUBICIN [Suspect]
     Active Substance: DOXORUBICIN
     Indication: OSTEOSARCOMA
     Dosage: 37.5 MG/M2/DAY ON DAY 1 AND 2
     Route: 050
  2. CISPLATIN. [Suspect]
     Active Substance: CISPLATIN
     Indication: OSTEOSARCOMA
     Dosage: 60 MG/M2/DAY ON DAY 1 AND 2
     Route: 065
  3. IIFOSFAMIDE [Concomitant]
     Indication: OSTEOSARCOMA
     Dosage: 2.8 G/M2/DOSE FOR 5 DAYS ON WEEKS 16, 24 AND 32
  4. IIFOSFAMIDE [Concomitant]
     Indication: OSTEOSARCOMA
     Dosage: 3 G/M2/DAY FOR 3 DAYS ON WEEKS 20 AND 36
     Route: 065
  5. ETOPOSIDE. [Concomitant]
     Active Substance: ETOPOSIDE
     Indication: OSTEOSARCOMA
     Dosage: 100 MG/M2/DAY FOR 5 DAYS ON WEEKS 16, 24 AND 32
     Route: 065
  6. METHOTREXATE. [Concomitant]
     Active Substance: METHOTREXATE
     Indication: OSTEOSARCOMA
     Dosage: 12 G/M2/DAY
     Route: 065

REACTIONS (2)
  - Stomatitis [Unknown]
  - Hypoacusis [Unknown]
